FAERS Safety Report 6539129-0 (Version None)
Quarter: 2010Q1

REPORT INFORMATION
  Report Type: 
  Country: None (occurrence: None)
  Receive Date: 20100112
  Receipt Date: 20091228
  Transmission Date: 20100710
  Serious: Yes (Life-Threatening, Hospitalization)
  Sender: FDA-Public Use
  Company Number: 003586

PATIENT
  Sex: Male

DRUGS (4)
  1. KEPPRA [Suspect]
     Indication: PARTIAL SEIZURES
     Dosage: (500 MG QD ORAL)
     Route: 048
     Dates: start: 20090926, end: 20091106
  2. DEPO-MEDROL [Suspect]
     Dosage: 200 MG ORAL
     Route: 048
     Dates: start: 20090926
  3. ACETAMINOPHEN [Suspect]
     Dosage: 1 G QID ORAL
     Route: 048
     Dates: start: 20090926
  4. NEXIUM [Suspect]
     Dosage: 1 UNIT PER DAY ORAL
     Route: 048
     Dates: start: 20090926

REACTIONS (3)
  - GENERAL PHYSICAL HEALTH DETERIORATION [None]
  - STATUS EPILEPTICUS [None]
  - THROMBOCYTOPENIA [None]
